FAERS Safety Report 13533953 (Version 1)
Quarter: 2017Q2

REPORT INFORMATION
  Report Type: Spontaneous
  Country: US (occurrence: US)
  Receive Date: 20170510
  Receipt Date: 20170510
  Transmission Date: 20170830
  Serious: No
  Sender: FDA-Public Use
  Company Number: US-SA-2017SA074382

PATIENT
  Age: 64 Year
  Sex: Female

DRUGS (1)
  1. XYZAL ALLERGY 24HR [Suspect]
     Active Substance: LEVOCETIRIZINE DIHYDROCHLORIDE
     Indication: MULTIPLE ALLERGIES
     Dosage: START DATE:2 WEEKS AGO AND STOP DATE :COUPLE OF DAYS
     Route: 065

REACTIONS (4)
  - Nasal congestion [Not Recovered/Not Resolved]
  - Intentional product misuse [Unknown]
  - Dysphonia [Not Recovered/Not Resolved]
  - Drug ineffective [Unknown]
